FAERS Safety Report 8096551-1 (Version None)
Quarter: 2012Q1

REPORT INFORMATION
  Report Type: 
  Country: None (occurrence: None)
  Receive Date: 20120129
  Receipt Date: 20111108
  Transmission Date: 20120608
  Serious: No
  Sender: FDA-Public Use
  Company Number: US-ABBOTT-11P-163-0872563-00

PATIENT
  Age: 74 Year
  Sex: Female

DRUGS (14)
  1. TORSEMIDE [Concomitant]
     Indication: DIURETIC THERAPY
     Dosage: DAILY
  2. GLUCOSAMINE CHONDROITIN [Concomitant]
     Indication: ARTHROPATHY
     Dosage: DAILY
  3. VERAPAMIL [Concomitant]
     Indication: ATRIAL FIBRILLATION
     Dosage: DAILY
  4. HUMIRA [Suspect]
     Indication: PSORIASIS
     Dates: start: 20111004
  5. MULTI-VITAMINS [Concomitant]
     Indication: PRODUCT USED FOR UNKNOWN INDICATION
     Dosage: DAILY
  6. ASCORBIC ACID [Concomitant]
     Indication: PRODUCT USED FOR UNKNOWN INDICATION
     Dosage: DAILY
  7. AMLODIPINE [Concomitant]
     Indication: HYPERTENSION
     Dosage: DAILY
  8. LIPITOR [Concomitant]
     Indication: BLOOD CHOLESTEROL INCREASED
     Dosage: DAILY
  9. VITAMIN D [Concomitant]
     Indication: PRODUCT USED FOR UNKNOWN INDICATION
  10. PRADAXA [Concomitant]
     Indication: ATRIAL FIBRILLATION
  11. METFORMIN HCL [Concomitant]
     Indication: DIABETES MELLITUS
     Dosage: DAILY
  12. FISH OIL [Concomitant]
     Indication: PRODUCT USED FOR UNKNOWN INDICATION
  13. VITAMIN B COMPLEX CAP [Concomitant]
     Indication: PRODUCT USED FOR UNKNOWN INDICATION
     Dosage: DAILY
  14. RAMIPRIL [Concomitant]
     Indication: HYPERTENSION

REACTIONS (7)
  - SKIN LESION [None]
  - INCORRECT ROUTE OF DRUG ADMINISTRATION [None]
  - WRONG TECHNIQUE IN DRUG USAGE PROCESS [None]
  - ERYTHEMA [None]
  - PSORIASIS [None]
  - HAEMORRHAGE [None]
  - PRURITUS [None]
